FAERS Safety Report 10249595 (Version 1)
Quarter: 2014Q2

REPORT INFORMATION
  Report Type: Spontaneous
  Country: US (occurrence: US)
  Receive Date: 20140620
  Receipt Date: 20140620
  Transmission Date: 20141212
  Serious: No
  Sender: FDA-Public Use
  Company Number: US-ASTRAZENECA-2014SE22022

PATIENT
  Age: 70 Year
  Sex: Female
  Weight: 73.5 kg

DRUGS (5)
  1. LISINOPRIL [Suspect]
     Indication: BLOOD PRESSURE ABNORMAL
     Route: 048
  2. METOPROLOL SUCCINATE [Suspect]
     Indication: BLOOD PRESSURE ABNORMAL
     Route: 048
  3. BRILINTA [Suspect]
     Indication: STENT PLACEMENT
     Route: 048
     Dates: start: 201403
  4. LANOXIN [Concomitant]
     Indication: CARDIAC FAILURE CONGESTIVE
  5. ASPIRIN [Concomitant]
     Indication: ANTICOAGULANT THERAPY
     Dates: start: 201403

REACTIONS (4)
  - Epistaxis [Not Recovered/Not Resolved]
  - Hypertension [Unknown]
  - Asthenia [Unknown]
  - Intentional product misuse [Unknown]
